FAERS Safety Report 18160564 (Version 2)
Quarter: 2023Q1

REPORT INFORMATION
  Report Type: Spontaneous
  Country: US (occurrence: US)
  Receive Date: 20200817
  Receipt Date: 20230121
  Transmission Date: 20230417
  Serious: Yes (Other)
  Sender: FDA-Public Use
  Company Number: US-PPD-2020AMR000534

PATIENT
  Age: 84 Year
  Sex: Male
  Weight: 91.63 kg

DRUGS (4)
  1. VASCEPA [Suspect]
     Active Substance: ICOSAPENT ETHYL
     Indication: Blood triglycerides increased
     Dosage: FREQUENCY TEXT : IN THE MORNING
     Route: 048
  2. VASCEPA [Suspect]
     Active Substance: ICOSAPENT ETHYL
     Indication: Blood cholesterol abnormal
     Route: 048
  3. TRESIBA [Concomitant]
     Active Substance: INSULIN DEGLUDEC
     Indication: Type 2 diabetes mellitus
  4. JARDIANCE [Concomitant]
     Active Substance: EMPAGLIFLOZIN
     Indication: Type 2 diabetes mellitus
     Dosage: FREQUENCY TEXT : ONCE DAILY
     Route: 048
     Dates: start: 2010

REACTIONS (10)
  - Renal transplant [Unknown]
  - Hypoxia [Unknown]
  - Loss of consciousness [Unknown]
  - Femur fracture [Unknown]
  - Fall [Unknown]
  - Regurgitation [Not Recovered/Not Resolved]
  - Prescribed underdose [Unknown]
  - Refusal of treatment by patient [Unknown]
  - Product taste abnormal [Not Recovered/Not Resolved]
  - Product size issue [Unknown]

NARRATIVE: CASE EVENT DATE: 20150101
